FAERS Safety Report 20561883 (Version 1)
Quarter: 2022Q1

REPORT INFORMATION
  Report Type: Spontaneous
  Country: US (occurrence: US)
  Receive Date: 20220307
  Receipt Date: 20220307
  Transmission Date: 20220423
  Serious: No
  Sender: FDA-Public Use
  Company Number: US-ORGANON-O2203USA000397

PATIENT
  Age: 14 Year
  Sex: Female
  Weight: 64.399 kg

DRUGS (1)
  1. NEXPLANON [Suspect]
     Active Substance: ETONOGESTREL
     Indication: Contraception
     Dosage: LEFT ARM (IMPLANT)/3 YEARS
     Route: 059
     Dates: start: 20191223

REACTIONS (3)
  - Amenorrhoea [Unknown]
  - Heavy menstrual bleeding [Recovering/Resolving]
  - Intermenstrual bleeding [Recovering/Resolving]

NARRATIVE: CASE EVENT DATE: 20191201
